FAERS Safety Report 21062405 (Version 8)
Quarter: 2023Q4

REPORT INFORMATION
  Report Type: Other
  Country: CA (occurrence: None)
  Receive Date: 20220711
  Receipt Date: 20231208
  Transmission Date: 20240110
  Serious: Yes (Other)
  Sender: FDA-Public Use
  Company Number: CA-ROCHE-3125579

PATIENT
  Sex: Male

DRUGS (8)
  1. OCREVUS [Suspect]
     Active Substance: OCRELIZUMAB
     Indication: Relapsing-remitting multiple sclerosis
     Dosage: 300 MG AT DAY 0 AND 14, THEN 600 MG EVERY 6 MONTH?DATE OF INFUSION 30/DEC/2022
     Route: 042
     Dates: start: 20220621
  2. LYRICA [Concomitant]
     Active Substance: PREGABALIN
  3. SYNTHROID [Concomitant]
     Active Substance: LEVOTHYROXINE SODIUM
  4. ATORVASTATIN CALCIUM [Concomitant]
     Active Substance: ATORVASTATIN CALCIUM
  5. TRAMADOL HYDROCHLORIDE [Concomitant]
     Active Substance: TRAMADOL HYDROCHLORIDE
  6. NAPROXEN [Concomitant]
     Active Substance: NAPROXEN
     Dosage: 375/20 MG
     Route: 048
  7. IRON [Concomitant]
     Active Substance: IRON
  8. MODERNA COVID-19 VACCINE [Concomitant]
     Active Substance: ELASOMERAN
     Dates: start: 20231123

REACTIONS (4)
  - Multiple sclerosis [Unknown]
  - Diverticulitis [Not Recovered/Not Resolved]
  - Infusion related reaction [Recovered/Resolved]
  - Gait disturbance [Not Recovered/Not Resolved]
